FAERS Safety Report 7007139-5 (Version None)
Quarter: 2010Q3

REPORT INFORMATION
  Report Type: 
  Country: None (occurrence: None)
  Receive Date: 20100920
  Receipt Date: 20100907
  Transmission Date: 20110219
  Serious: Yes (Other)
  Sender: FDA-Public Use
  Company Number: NSR_00108_2010

PATIENT
  Age: 13 Year
  Sex: Female

DRUGS (4)
  1. FLUOXETINE [Suspect]
     Indication: PRODUCT USED FOR UNKNOWN INDICATION
     Dosage: (20 MG QD ORAL), (20 MG QD ORAL), (30 MG QD ORAL), (20 MG QD ORAL)
     Route: 048
     Dates: start: 20100401, end: 20100101
  2. FLUOXETINE [Suspect]
     Indication: PRODUCT USED FOR UNKNOWN INDICATION
     Dosage: (20 MG QD ORAL), (20 MG QD ORAL), (30 MG QD ORAL), (20 MG QD ORAL)
     Route: 048
     Dates: start: 20090601, end: 20100401
  3. FLUOXETINE [Suspect]
     Indication: PRODUCT USED FOR UNKNOWN INDICATION
     Dosage: (20 MG QD ORAL), (20 MG QD ORAL), (30 MG QD ORAL), (20 MG QD ORAL)
     Route: 048
     Dates: start: 20100101, end: 20100701
  4. FLUOXETINE [Suspect]
     Indication: PRODUCT USED FOR UNKNOWN INDICATION
     Dosage: (20 MG QD ORAL), (20 MG QD ORAL), (30 MG QD ORAL), (20 MG QD ORAL)
     Route: 048
     Dates: start: 20100701

REACTIONS (3)
  - DRUG EFFECT DECREASED [None]
  - DRUG WITHDRAWAL SYNDROME [None]
  - PRODUCT SUBSTITUTION ISSUE [None]
